FAERS Safety Report 5838899-4 (Version None)
Quarter: 2008Q3

REPORT INFORMATION
  Report Type: 
  Country: None (occurrence: None)
  Receive Date: 20080808
  Receipt Date: 20080730
  Transmission Date: 20090109
  Serious: Yes (Other)
  Sender: FDA-Public Use
  Company Number: PHHY2008GB09532

PATIENT
  Sex: Male

DRUGS (4)
  1. CLOZARIL [Suspect]
     Indication: SCHIZOPHRENIA
     Dosage: 950 MG/DAY
     Dates: start: 19950619
  2. SULPIRIDE [Concomitant]
     Indication: SCHIZOPHRENIA
     Dosage: 400 MG/DAY
  3. LANSOPRAZOLE [Concomitant]
     Indication: OESOPHAGITIS
     Dosage: 60 MG/DAY
  4. OMEPRAZOLE [Concomitant]
     Indication: OESOPHAGITIS

REACTIONS (10)
  - DEHYDRATION [None]
  - EROSIVE OESOPHAGITIS [None]
  - GASTRITIS [None]
  - GASTROINTESTINAL HAEMORRHAGE [None]
  - HAEMATEMESIS [None]
  - HIATUS HERNIA [None]
  - NEUTROPHIL COUNT INCREASED [None]
  - REFLUX OESOPHAGITIS [None]
  - VOMITING [None]
  - WHITE BLOOD CELL COUNT INCREASED [None]
